FAERS Safety Report 16860920 (Version 2)
Quarter: 2019Q4

REPORT INFORMATION
  Report Type: Other
  Country: RO (occurrence: RO)
  Receive Date: 20190927
  Receipt Date: 20191031
  Transmission Date: 20200122
  Serious: Yes (Disabling)
  Sender: FDA-Public Use
  Company Number: RO-CELLTRION INC.-2019RO025046

PATIENT

DRUGS (4)
  1. TRASTUZUMAB (UNKNOWN) [Suspect]
     Active Substance: TRASTUZUMAB
     Indication: BREAST CANCER METASTATIC
     Dosage: UNK
     Route: 065
  2. TRASTUZUMAB/VORHYALURONIDASE ALFA [Suspect]
     Active Substance: HYALURONIDASE (HUMAN RECOMBINANT)\TRASTUZUMAB
     Indication: BREAST CANCER METASTATIC
     Dosage: UNK
  3. TRASTUZUMAB/VORHYALURONIDASE ALFA [Suspect]
     Active Substance: HYALURONIDASE (HUMAN RECOMBINANT)\TRASTUZUMAB
     Indication: BREAST CANCER STAGE IV
     Dosage: 600 MG
     Route: 058
  4. TRASTUZUMAB/VORHYALURONIDASE ALFA [Suspect]
     Active Substance: HYALURONIDASE (HUMAN RECOMBINANT)\TRASTUZUMAB
     Indication: METASTASES TO BONE
     Dosage: 600 MG, 21 DAYS (STRENGTH: 600MG/5ML)
     Route: 058
     Dates: start: 20160101

REACTIONS (16)
  - Headache [Unknown]
  - Rash [Recovered/Resolved]
  - Pruritus [Recovered/Resolved]
  - Nasopharyngitis [Not Recovered/Not Resolved]
  - Vomiting [Unknown]
  - Skin exfoliation [Recovered/Resolved]
  - Bone pain [Unknown]
  - Confusional state [Unknown]
  - Asthenia [Unknown]
  - Eye disorder [Not Recovered/Not Resolved]
  - Pain in extremity [Not Recovered/Not Resolved]
  - Mouth swelling [Not Recovered/Not Resolved]
  - Alopecia [Unknown]
  - Pain [Unknown]
  - Amnesia [Not Recovered/Not Resolved]
  - Fatigue [Not Recovered/Not Resolved]
